FAERS Safety Report 11226252 (Version 1)
Quarter: 2015Q2

REPORT INFORMATION
  Report Type: Spontaneous
  Country: AU (occurrence: AU)
  Receive Date: 20150629
  Receipt Date: 20150629
  Transmission Date: 20150821
  Serious: Yes (Other)
  Sender: FDA-Public Use
  Company Number: AU-MYLANLABS-2015M1021176

PATIENT

DRUGS (2)
  1. NITRIC OXIDE. [Concomitant]
     Active Substance: NITRIC OXIDE
     Indication: PRODUCT USED FOR UNKNOWN INDICATION
     Dosage: 10 PPM STARTED AT 72 HOURS OF LIFE
     Route: 055
  2. SILDENAFIL. [Suspect]
     Active Substance: SILDENAFIL
     Indication: PERSISTENT FOETAL CIRCULATION
     Dosage: 0.5 MG/KG/DOSE 6 HOURLY
     Route: 048

REACTIONS (2)
  - Prerenal failure [Recovered/Resolved]
  - Hypotension [Recovered/Resolved]
